FAERS Safety Report 12633175 (Version 1)
Quarter: 2016Q3

REPORT INFORMATION
  Report Type: Spontaneous
  Country: US (occurrence: None)
  Receive Date: 20160808
  Receipt Date: 20160808
  Transmission Date: 20161109
  Serious: Yes (Disabling)
  Sender: FDA-Public Use
  Company Number: None

PATIENT
  Age: 63 Year
  Sex: Female
  Weight: 56.7 kg

DRUGS (5)
  1. XARELTO [Suspect]
     Active Substance: RIVAROXABAN
     Indication: CARDIAC ABLATION
     Dosage: 30 TABLET(S) ONCE A DAY TAKEN BY MOUTH
     Route: 048
     Dates: start: 20160621, end: 20160805
  2. ESTRACE [Concomitant]
     Active Substance: ESTRADIOL
  3. CLONIDINE. [Concomitant]
     Active Substance: CLONIDINE
  4. XARELTO [Suspect]
     Active Substance: RIVAROXABAN
     Indication: CARDIAC FIBRILLATION
     Dosage: 30 TABLET(S) ONCE A DAY TAKEN BY MOUTH
     Route: 048
     Dates: start: 20160621, end: 20160805
  5. LAMICTAL [Concomitant]
     Active Substance: LAMOTRIGINE

REACTIONS (8)
  - Cough [None]
  - Chest pain [None]
  - Gastrooesophageal reflux disease [None]
  - Discomfort [None]
  - Abdominal pain [None]
  - Abdominal pain upper [None]
  - Impaired work ability [None]
  - Ulcer [None]

NARRATIVE: CASE EVENT DATE: 20160720
